FAERS Safety Report 6795199-6 (Version None)
Quarter: 2010Q2

REPORT INFORMATION
  Report Type: 
  Country: None (occurrence: None)
  Receive Date: 20100625
  Receipt Date: 20100618
  Transmission Date: 20101027
  Serious: Yes (Hospitalization)
  Sender: FDA-Public Use
  Company Number: BR-ROCHE-710313

PATIENT
  Sex: Female
  Weight: 63 kg

DRUGS (4)
  1. TRASTUZUMAB [Suspect]
     Indication: BREAST CANCER
     Dosage: LOADING DOSE
     Route: 042
  2. TRASTUZUMAB [Suspect]
     Dosage: LAST DOSE PRIOR TO SAE 02 JUN 2010. MAINTAINENCE DOSE.
     Route: 042
     Dates: start: 20091210
  3. CITALOPRAM [Concomitant]
     Dosage: DRUG REPORTED AS CYTALOPRAM
     Dates: start: 20090201
  4. LITHIUM CARBONATE [Concomitant]
     Dates: start: 20090701

REACTIONS (1)
  - METRORRHAGIA [None]
